FAERS Safety Report 9517196 (Version 4)
Quarter: 2013Q4

REPORT INFORMATION
  Report Type: Spontaneous
  Country: FR (occurrence: FR)
  Receive Date: 20130911
  Receipt Date: 20131025
  Transmission Date: 20140711
  Serious: Yes (Hospitalization)
  Sender: FDA-Public Use
  Company Number: FR-PFIZER INC-2013255250

PATIENT
  Age: 41 Year
  Sex: Female

DRUGS (55)
  1. SOLU-MEDROL [Suspect]
     Dosage: 140 MG, 1X/DAY
     Route: 042
     Dates: start: 20130709
  2. ATARAX [Suspect]
     Dosage: 50 MG, 1X/DAY
     Route: 048
     Dates: start: 20130714
  3. FORTUM [Suspect]
     Dosage: 1 G, 4X/DAY
     Route: 042
     Dates: start: 20130621, end: 20130809
  4. FLAGYL [Suspect]
     Dosage: 500 MG, 3X/DAY
     Route: 048
     Dates: start: 20130712, end: 20130812
  5. GENTAMYCIN PNAPHARMA [Suspect]
     Dosage: 210 MG, 1X/DAY
     Route: 042
     Dates: start: 20130809, end: 20130811
  6. NOXAFIL [Suspect]
     Dosage: 200 MG, 3X/DAY
     Route: 048
     Dates: start: 20130619, end: 20130708
  7. CANCIDAS [Suspect]
     Dosage: UNK
     Route: 042
     Dates: start: 20130709, end: 20130709
  8. AMBISOME [Suspect]
     Dosage: 180 MG, 1X/DAY
     Route: 042
     Dates: start: 20130709, end: 20130811
  9. BACTRIM [Suspect]
     Dosage: 2 DF, 3 TIMES IN WEEK
     Route: 042
     Dates: start: 20130724, end: 20130809
  10. FOLINIC ACID [Suspect]
     Dosage: 50 MG, 3 TIMES IN WEEK
     Route: 042
     Dates: start: 20130724, end: 20130809
  11. ZELITREX [Suspect]
     Dosage: 500 MG, 2X/DAY
     Route: 042
     Dates: start: 20130709, end: 20130812
  12. CYMEVAN [Suspect]
     Dosage: 350 MG, 2X/DAY
     Route: 042
     Dates: start: 20130726, end: 20130812
  13. FOSCAVIR [Suspect]
     Dosage: 1 DF, 2X/DAY
     Route: 042
     Dates: start: 20130808
  14. CLAIRYG [Suspect]
     Dosage: UNK
     Route: 042
  15. GRANOCYTE [Suspect]
     Dosage: UNK
     Route: 042
     Dates: start: 20130807
  16. HEPARIN SODIUM [Suspect]
     Dosage: 7000 IU, 1X/DAY
     Route: 042
     Dates: start: 20130605
  17. INEXIUM [Suspect]
     Dosage: 40 MG, 1X/DAY
     Route: 042
     Dates: start: 20130709, end: 20130812
  18. SPASFON [Suspect]
     Dosage: 2 DF, 3X/DAY
     Route: 042
     Dates: start: 20130619
  19. DELURSAN [Suspect]
     Dosage: 3 DF, 2X/DAY
     Route: 048
     Dates: start: 20130605, end: 20130708
  20. DEFIBROTIDE [Suspect]
     Dosage: 25 MG/KG, 1X/DAY
     Route: 042
     Dates: start: 20130605, end: 20130812
  21. LARGACTIL [Suspect]
     Dosage: 1 DF, 1X/DAY
     Route: 042
     Dates: start: 20130619, end: 20130709
  22. LARGACTIL [Suspect]
     Dosage: 1 DF, 1X/DAY
     Route: 042
     Dates: start: 20130709, end: 20130709
  23. TRANXENE [Suspect]
     Dosage: 5 MG, AS NEEDED (1DF 4)
     Route: 048
     Dates: start: 20130622, end: 20130709
  24. OXYNORM [Suspect]
     Dosage: UNK
     Route: 042
     Dates: start: 20130619
  25. EXACYL [Suspect]
     Dosage: 1 DF, 3X/DAY
     Route: 042
     Dates: start: 20130727, end: 20130812
  26. PERFALGAN [Suspect]
     Dosage: 1 G, 3X/DAY
     Route: 042
     Dates: start: 20130710, end: 20130812
  27. DROLEPTAN [Suspect]
     Dosage: 0.625 MG, 4X/DAY
     Route: 042
     Dates: start: 20130712, end: 20130717
  28. ULTIVA [Suspect]
     Dosage: 100 GBQ , 1 IN 1 HOUR
     Route: 042
     Dates: start: 20130714, end: 20130717
  29. LASILIX [Suspect]
     Dosage: 40 MG, 2X/DAY
     Route: 042
     Dates: start: 20130716, end: 20130809
  30. SEROPLEX [Suspect]
     Dosage: 10 MG, 1X/DAY
     Route: 048
     Dates: start: 20130721
  31. CERIS [Suspect]
     Dosage: 20 MG, 2X/DAY
     Route: 048
     Dates: start: 20130807
  32. NOCTAMIDE [Suspect]
     Dosage: 2 MG, 1X/DAY
     Route: 048
     Dates: start: 20130708
  33. NOCTAMIDE [Suspect]
     Dosage: SCORED TABLET, 1X/DAY
     Route: 048
     Dates: start: 20130605
  34. GENTAMYCIN [Concomitant]
     Indication: PROPHYLAXIS
     Dosage: 2 DF, 3X/DAY
     Dates: start: 20130605, end: 20130708
  35. COLISTIMETHATE SODIUM [Concomitant]
     Indication: PROPHYLAXIS
     Dosage: 2 DF, 3X/DAY
     Dates: start: 20130605, end: 20130708
  36. VANCOMYCIN MYLAN [Concomitant]
     Dosage: 1 G, 1X/DAY
     Dates: start: 20130605, end: 20130709
  37. CIFLOX [Concomitant]
     Dosage: 400 MG, 2X/DAY
     Dates: start: 20130621, end: 20130712
  38. TARGOCID [Concomitant]
     Dosage: 400 MG, 2X/DAY
     Dates: start: 20130710
  39. MYCOSTATINE [Concomitant]
     Dosage: 2 DF, 1X/DAY (VIALS)
     Dates: start: 20130605, end: 20130619
  40. TRIFLUCAN [Concomitant]
     Dosage: 200 MG, 1X/DAY
     Dates: start: 20130605, end: 20130618
  41. ZOVIRAX [Concomitant]
     Dosage: 250 MG, 3X/DAY
     Dates: start: 20130605, end: 20130709
  42. METHOTREXATE MYLAN [Concomitant]
     Dosage: 18 MG, 1X/DAY
     Dates: start: 20130605, end: 20130619
  43. ELVORINE [Concomitant]
     Dosage: 18.4 MG, 1X/DAY
     Dates: start: 20130605, end: 20130619
  44. SANDIMMUN [Concomitant]
     Dosage: 210 MG, 1X/DAY
     Dates: start: 20130614, end: 20130708
  45. MOPRAL [Concomitant]
     Dosage: 20 MG, 1X/DAY
     Dates: start: 20130605, end: 20130618
  46. OGASTRO [Concomitant]
     Dosage: 30 MG, 1X/DAY
     Dates: start: 20130619, end: 20130708
  47. GELOX [Concomitant]
     Dosage: 1 DF, 3X/DAY
     Dates: start: 20130605, end: 20130708
  48. SMECTA [Concomitant]
     Dosage: 6 BAGS/DAY
     Dates: start: 20130620, end: 20130708
  49. LUTERAN [Concomitant]
     Dosage: UNK, ONE A DAY
     Dates: start: 20130605, end: 20130708
  50. LEXOMIL [Concomitant]
     Dosage: 0.5 DF, 1X/DAY
     Dates: start: 20130605, end: 20130708
  51. ZOPHREN [Concomitant]
     Dosage: 2 DF, 1X/DAY (VIALS)
     Dates: start: 20130605, end: 20130708
  52. PRIMPERAN [Concomitant]
     Dosage: 6 DF, 1X/DAY (VIALS)
     Dates: start: 20130620, end: 20130709
  53. ACUPAN [Concomitant]
     Dosage: 6 DF, AS NEEDED (VIALS)
     Dates: start: 20130620, end: 20130709
  54. TIORFAN [Concomitant]
     Dosage: UNK
     Dates: start: 20130622, end: 20130708
  55. LEVOCARNIL [Concomitant]
     Dosage: 1 G, 3X/DAY
     Dates: start: 20130709, end: 20130714

REACTIONS (1)
  - Toxic epidermal necrolysis [Not Recovered/Not Resolved]
